FAERS Safety Report 23611854 (Version 2)
Quarter: 2024Q2

REPORT INFORMATION
  Report Type: Spontaneous
  Country: US (occurrence: US)
  Receive Date: 20240308
  Receipt Date: 20240528
  Transmission Date: 20240716
  Serious: Yes (Hospitalization)
  Sender: FDA-Public Use
  Company Number: US-BRISTOL-MYERS SQUIBB COMPANY-2024-036326

PATIENT
  Age: 55 Year
  Sex: Female

DRUGS (2)
  1. REVLIMID [Suspect]
     Active Substance: LENALIDOMIDE
     Indication: Plasma cell myeloma in remission
     Dosage: TAKE 1 CAPSULE (10 MG TOTAL) BY MOUTH ONCE DAILY FOR 21 DAYS, THEN 7 DAYS OFF AS DIRECTED
     Route: 048
     Dates: start: 20240305, end: 202405
  2. REVLIMID [Suspect]
     Active Substance: LENALIDOMIDE
     Dates: start: 202405

REACTIONS (2)
  - Musculoskeletal discomfort [Unknown]
  - Illness [Recovering/Resolving]
